FAERS Safety Report 17845517 (Version 1)
Quarter: 2020Q2

REPORT INFORMATION
  Report Type: Spontaneous
  Country: US (occurrence: US)
  Receive Date: 20200529
  Receipt Date: 20200529
  Transmission Date: 20200714
  Serious: No
  Sender: FDA-Public Use
  Company Number: None

PATIENT
  Age: 65 Year
  Sex: Female
  Weight: 86.4 kg

DRUGS (29)
  1. MULTIVIT [Concomitant]
     Active Substance: VITAMINS
  2. CHROMIUM ZINC [Concomitant]
  3. DIGESTIVE ENZYMES [Concomitant]
     Active Substance: UNSPECIFIED INGREDIENT
  4. PENETREX CREAM [Concomitant]
  5. IBUPROFEN. [Concomitant]
     Active Substance: IBUPROFEN
  6. D-RIBOSE [Concomitant]
     Active Substance: DIETARY SUPPLEMENT
  7. 5-HTP [Concomitant]
  8. OMEGA 3 CAPSULE [Concomitant]
     Active Substance: FISH OIL\OMEGA-3 FATTY ACIDS
  9. TUMERIC [Concomitant]
     Active Substance: HERBALS\TURMERIC
  10. GINGER. [Concomitant]
     Active Substance: GINGER
  11. LIOTHYRONINE 10MCG [Concomitant]
  12. VITAMINS D, E, C [Concomitant]
  13. METHYL FOLATE [Concomitant]
     Active Substance: LEVOMEFOLATE CALCIUM
  14. TYLENOL [Concomitant]
     Active Substance: ACETAMINOPHEN
  15. BUPROPION HYDROCHLORIDE 300MG AND 150MG TABLETS MADE BY LUPIN [Suspect]
     Active Substance: BUPROPION HYDROCHLORIDE
     Indication: DEPRESSION
     Dosage: ?          QUANTITY:1 TABLET(S);?
     Route: 048
     Dates: start: 20200201, end: 20200401
  16. SAVELLA [Concomitant]
     Active Substance: MILNACIPRAN HYDROCHLORIDE
  17. RHODIOLA [Concomitant]
     Active Substance: HERBALS
  18. MELATONIN [Concomitant]
     Active Substance: MELATONIN
  19. GLUTAMINE [Concomitant]
     Active Substance: GLUTAMINE
  20. ULTRASOUND DEVICE [Concomitant]
  21. NATURE-THROID [Concomitant]
     Active Substance: THYROID, PORCINE
  22. MAGNESIUM [Concomitant]
     Active Substance: MAGNESIUM
  23. CBD OIL [Concomitant]
     Active Substance: CANNABIDIOL\HERBALS
  24. SELENIUM [Concomitant]
     Active Substance: SELENIUM
  25. TENS UNIT FOR PAIN AND VAGUS NERVE STIMULATION [Concomitant]
  26. DEVICE [Concomitant]
     Active Substance: DEVICE
  27. RED LIGHT THERAPY [Concomitant]
  28. FAR-INFRARED HEAT THERAPY [Concomitant]
  29. VITAMIN B COMPLEX [Concomitant]
     Active Substance: CYANOCOBALAMIN\DEXPANTHENOL\NIACINAMIDE\PYRIDOXINE HYDROCHLORIDE\RIBOFLAVIN 5^-PHOSPHATE SODIUM\THIAMINE HYDROCHLORIDE\VITAMIN B COMPLEX

REACTIONS (8)
  - Headache [None]
  - Product substitution issue [None]
  - Arthralgia [None]
  - Asthenia [None]
  - Symptom recurrence [None]
  - Depression [None]
  - Product quality issue [None]
  - Therapeutic response decreased [None]

NARRATIVE: CASE EVENT DATE: 20200301
